FAERS Safety Report 4752456-2 (Version None)
Quarter: 2005Q3

REPORT INFORMATION
  Report Type: 
  Country: None (occurrence: None)
  Receive Date: 20050825
  Receipt Date: 20050819
  Transmission Date: 20060218
  Serious: Yes (Other)
  Sender: FDA-Public Use
  Company Number: PHBS2005FR12178

PATIENT
  Age: 51 Year
  Sex: Male

DRUGS (10)
  1. CYCLOSPORINE [Suspect]
     Indication: STEM CELL TRANSPLANT
     Dosage: 4 MG/KG/DAY
     Route: 048
  2. BUSULFAN [Concomitant]
     Dosage: 1 MG/KG, Q6H
     Route: 048
  3. CYCLOPHOSPHAMIDE [Concomitant]
     Dosage: 60 MG/KG/DAY
     Route: 042
  4. CYCLOSPORINE [Suspect]
     Route: 042
  5. METHOTREXATE [Concomitant]
     Dosage: 15 MG/M2
  6. METHOTREXATE [Concomitant]
     Dosage: 10 MG/KG/DAY
  7. METHOTREXATE [Concomitant]
     Dosage: 10 MG/KG/DAY
  8. HEPARIN [Concomitant]
     Dosage: 100 IU/KG/DAY
     Route: 042
  9. COLISTIN SULFATE [Concomitant]
  10. GENTAMICIN [Concomitant]

REACTIONS (3)
  - BACTERAEMIA [None]
  - MUCOSAL INFLAMMATION [None]
  - PYREXIA [None]
